FAERS Safety Report 25662868 (Version 1)
Quarter: 2025Q3

REPORT INFORMATION
  Report Type: Spontaneous
  Country: EU (occurrence: EU)
  Receive Date: 20250811
  Receipt Date: 20250811
  Transmission Date: 20251021
  Serious: Yes (Death, Other)
  Sender: Unknown Manufacturer
  Company Number: EU-STRIDES ARCOLAB LIMITED-2025OS000370

PATIENT
  Age: 2 Year

DRUGS (18)
  1. ETOPOSIDE [Suspect]
     Active Substance: ETOPOSIDE
     Indication: Congenital teratoma
     Route: 065
  2. ETOPOSIDE [Suspect]
     Active Substance: ETOPOSIDE
     Indication: Metastases to liver
     Route: 065
  3. VINBLASTINE [Suspect]
     Active Substance: VINBLASTINE
     Indication: Congenital teratoma
     Route: 065
  4. VINBLASTINE [Suspect]
     Active Substance: VINBLASTINE
     Indication: Metastases to liver
  5. IFOSFAMIDE [Suspect]
     Active Substance: IFOSFAMIDE
     Indication: Congenital teratoma
     Route: 065
  6. IFOSFAMIDE [Suspect]
     Active Substance: IFOSFAMIDE
     Indication: Metastases to liver
  7. CISPLATIN [Suspect]
     Active Substance: CISPLATIN
     Indication: Congenital teratoma
     Route: 065
  8. CISPLATIN [Suspect]
     Active Substance: CISPLATIN
     Indication: Metastases to liver
  9. CARBOPLATIN [Suspect]
     Active Substance: CARBOPLATIN
     Indication: Congenital teratoma
     Route: 065
  10. CARBOPLATIN [Suspect]
     Active Substance: CARBOPLATIN
     Indication: Metastases to liver
  11. BLEOMYCIN [Suspect]
     Active Substance: BLEOMYCIN SULFATE
     Indication: Congenital teratoma
     Route: 065
  12. BLEOMYCIN [Suspect]
     Active Substance: BLEOMYCIN SULFATE
     Indication: Metastases to liver
  13. CYCLOPHOSPHAMIDE [Suspect]
     Active Substance: CYCLOPHOSPHAMIDE
     Indication: Congenital teratoma
     Route: 065
  14. CYCLOPHOSPHAMIDE [Suspect]
     Active Substance: CYCLOPHOSPHAMIDE
     Indication: Metastases to liver
  15. GEMCITABINE [Suspect]
     Active Substance: GEMCITABINE
     Indication: Congenital teratoma
     Route: 065
  16. GEMCITABINE [Suspect]
     Active Substance: GEMCITABINE
     Indication: Metastases to liver
  17. PACLITAXEL [Suspect]
     Active Substance: PACLITAXEL
     Indication: Congenital teratoma
     Route: 065
  18. PACLITAXEL [Suspect]
     Active Substance: PACLITAXEL
     Indication: Metastases to liver

REACTIONS (2)
  - Disease progression [Fatal]
  - Off label use [Unknown]
